FAERS Safety Report 7700345-3 (Version None)
Quarter: 2011Q3

REPORT INFORMATION
  Report Type: 
  Country: None (occurrence: None)
  Receive Date: 20110822
  Receipt Date: 20110811
  Transmission Date: 20111222
  Serious: Yes (Other)
  Sender: FDA-Public Use
  Company Number: PHHY2011JP63347

PATIENT
  Age: 73 Year
  Sex: Male

DRUGS (3)
  1. ATENOLOL [Concomitant]
     Route: 048
  2. NEORAL [Suspect]
     Route: 048
  3. ENALAPRIL MALEATE [Concomitant]
     Route: 048

REACTIONS (1)
  - HYPERTENSION [None]
